FAERS Safety Report 10422737 (Version 1)
Quarter: 2014Q3

REPORT INFORMATION
  Report Type: Spontaneous
  Country: GR (occurrence: GR)
  Receive Date: 20140902
  Receipt Date: 20140902
  Transmission Date: 20150326
  Serious: Yes (Disabling)
  Sender: FDA-Public Use
  Company Number: GR-ROCHE-1456039

PATIENT
  Age: 84 Year
  Sex: Male

DRUGS (6)
  1. DEPON [Concomitant]
     Active Substance: ACETAMINOPHEN
  2. OMACOR [Concomitant]
     Active Substance: OMEGA-3-ACID ETHYL ESTERS
     Indication: HYPERLIPIDAEMIA
  3. ZELBORAF [Suspect]
     Active Substance: VEMURAFENIB
     Indication: MALIGNANT MELANOMA
     Route: 048
     Dates: start: 201407
  4. SALOSPIR [Concomitant]
     Active Substance: ASPIRIN\CAFFEINE
     Indication: ARTERIOSCLEROSIS
  5. ZELBORAF [Suspect]
     Active Substance: VEMURAFENIB
     Route: 048
     Dates: start: 20140826
  6. THYROXINE [Concomitant]
     Active Substance: LEVOTHYROXINE
     Indication: THYROID DISORDER

REACTIONS (9)
  - Generalised erythema [Recovering/Resolving]
  - Pyrexia [Recovered/Resolved]
  - Pruritus [Recovering/Resolving]
  - Decreased appetite [Recovered/Resolved]
  - Pharyngeal oedema [Unknown]
  - Ageusia [Recovered/Resolved]
  - Oral fungal infection [Recovered/Resolved]
  - Dysuria [Recovered/Resolved]
  - Swollen tongue [Unknown]
